FAERS Safety Report 7115140-6 (Version None)
Quarter: 2010Q4

REPORT INFORMATION
  Report Type: 
  Country: None (occurrence: None)
  Receive Date: 20101122
  Receipt Date: 20101115
  Transmission Date: 20110411
  Serious: Yes (Hospitalization)
  Sender: FDA-Public Use
  Company Number: US-BAYER-201041677NA

PATIENT
  Age: 29 Year
  Sex: Female

DRUGS (2)
  1. MIRENA [Suspect]
     Indication: CONTRACEPTION
     Dosage: FREQUENCY: CONTINUOUS
     Route: 015
     Dates: start: 20080201, end: 20101108
  2. MIRENA [Suspect]
     Dosage: FREQUENCY: CONTINUOUS. MIRENAS HAS BEEN INSERTED IN JUL OR AUG-2004.
     Route: 015
     Dates: start: 20040101, end: 20080101

REACTIONS (1)
  - ECTOPIC PREGNANCY [None]
